FAERS Safety Report 22819407 (Version 4)
Quarter: 2024Q2

REPORT INFORMATION
  Report Type: Report from Study
  Country: KR (occurrence: KR)
  Receive Date: 20230814
  Receipt Date: 20240619
  Transmission Date: 20240716
  Serious: Yes (Hospitalization)
  Sender: FDA-Public Use
  Company Number: KR-002147023-NVSC2023KR173928

PATIENT
  Age: 75 Year
  Sex: Female
  Weight: 30.5 kg

DRUGS (62)
  1. KISQALI [Suspect]
     Active Substance: RIBOCICLIB
     Indication: Hormone receptor positive HER2 negative breast cancer
     Dosage: 400 MG, QD
     Route: 048
     Dates: start: 20230613, end: 20230803
  2. METOCLOPRAMIDE HYDROCHLORIDE [Concomitant]
     Active Substance: METOCLOPRAMIDE HYDROCHLORIDE
     Indication: Prophylaxis
     Dosage: 30 MG
     Route: 065
     Dates: start: 20230613, end: 20230701
  3. METOCLOPRAMIDE HYDROCHLORIDE [Concomitant]
     Active Substance: METOCLOPRAMIDE HYDROCHLORIDE
     Indication: Nausea
     Dosage: 30 MG
     Route: 065
     Dates: start: 20230710, end: 20230714
  4. METOCLOPRAMIDE HYDROCHLORIDE [Concomitant]
     Active Substance: METOCLOPRAMIDE HYDROCHLORIDE
     Dosage: 1 DOSAGE FORM
     Route: 065
     Dates: start: 20230717, end: 20230717
  5. METOCLOPRAMIDE HYDROCHLORIDE [Concomitant]
     Active Substance: METOCLOPRAMIDE HYDROCHLORIDE
     Dosage: 3 DOSAGE FORM
     Route: 065
     Dates: start: 20230718, end: 20230803
  6. METOCLOPRAMIDE HYDROCHLORIDE [Concomitant]
     Active Substance: METOCLOPRAMIDE HYDROCHLORIDE
     Dosage: 2 DOSAGE FORM, BID
     Route: 065
  7. MAGNESIUM HYDROXIDE [Concomitant]
     Active Substance: MAGNESIUM HYDROXIDE
     Indication: Prophylaxis
     Dosage: 4 DOSAGE FORM
     Route: 065
     Dates: start: 20230606, end: 20230626
  8. MAGNESIUM HYDROXIDE [Concomitant]
     Active Substance: MAGNESIUM HYDROXIDE
     Dosage: 2 DOSAGE FORM, BID
     Route: 065
  9. XGEVA [Concomitant]
     Active Substance: DENOSUMAB
     Indication: Prophylaxis
     Dosage: 120 MG
     Route: 065
     Dates: start: 20230613, end: 20230613
  10. XGEVA [Concomitant]
     Active Substance: DENOSUMAB
     Dosage: 120 MG
     Route: 065
     Dates: start: 20230710, end: 20230710
  11. XGEVA [Concomitant]
     Active Substance: DENOSUMAB
     Dosage: 1 DOSAGE FORM, QD (1 VL)
     Route: 065
  12. ACECLOFENAC [Concomitant]
     Active Substance: ACECLOFENAC
     Indication: Prophylaxis
     Dosage: 2 DOSAGE FORM, QD
     Route: 065
     Dates: start: 20230601, end: 20230626
  13. FEMARA [Concomitant]
     Active Substance: LETROZOLE
     Indication: Hormone therapy
     Dosage: 2.5 MG
     Route: 065
     Dates: start: 20230613
  14. FEMARA [Concomitant]
     Active Substance: LETROZOLE
     Dosage: 1 DOSAGE FORM, QD
     Route: 065
  15. ATACAND [Concomitant]
     Active Substance: CANDESARTAN CILEXETIL
     Indication: Hypertension
     Dosage: 1 DOSAGE FORM
     Route: 065
     Dates: start: 20230612, end: 20230626
  16. ATACAND [Concomitant]
     Active Substance: CANDESARTAN CILEXETIL
     Dosage: 1 DOSAGE FORM, QD
     Route: 065
     Dates: end: 20230722
  17. MEGACE F [Concomitant]
     Indication: Prophylaxis
     Dosage: (1 PKG, QD)
     Route: 065
     Dates: start: 20230613, end: 20230626
  18. NORZYME [Concomitant]
     Indication: Prophylaxis
     Dosage: 3 DOSAGE FORM
     Route: 065
     Dates: start: 20230613, end: 20230626
  19. NORZYME [Concomitant]
     Dosage: 1 DOSAGE FORM, TID
     Route: 065
  20. ZYPREXA [Concomitant]
     Active Substance: OLANZAPINE
     Indication: Prophylaxis
     Dosage: 1 DOSAGE FORM
     Route: 065
     Dates: start: 20230710, end: 20230714
  21. FERINJECT [Concomitant]
     Active Substance: FERRIC CARBOXYMALTOSE
     Indication: Anaemia
     Dosage: 1000 MG
     Route: 065
     Dates: start: 20230710, end: 20230710
  22. FERINJECT [Concomitant]
     Active Substance: FERRIC CARBOXYMALTOSE
     Dosage: 1 DOSAGE FORM, QD (1 VL)
     Route: 065
  23. PENIRAMIN [Concomitant]
     Indication: Prophylaxis
     Dosage: 4 MG
     Route: 065
     Dates: start: 20230710, end: 20230710
  24. PENIRAMIN [Concomitant]
     Dosage: 4 MG
     Route: 065
     Dates: start: 20230718, end: 20230718
  25. PENIRAMIN [Concomitant]
     Dosage: 4 MG
     Route: 065
     Dates: start: 20230721, end: 20230721
  26. PENIRAMIN [Concomitant]
     Dosage: 4 MG
     Route: 065
     Dates: start: 20230725, end: 20230726
  27. PENIRAMIN [Concomitant]
     Dosage: 4 MG
     Route: 065
     Dates: start: 20230728, end: 20230728
  28. PENIRAMIN [Concomitant]
     Dosage: 1 DOSAGE FORM, QD (AMPOUEL)
     Route: 065
  29. AMLODIPINE CAMSYLATE [Concomitant]
     Active Substance: AMLODIPINE CAMSYLATE
     Indication: Hypertension
     Dosage: 1 DOSAGE FORM, QD
     Route: 065
     Dates: start: 20230717, end: 20230719
  30. AMLODIPINE CAMSYLATE [Concomitant]
     Active Substance: AMLODIPINE CAMSYLATE
     Dosage: 1 DOSAGE FORM
     Route: 065
     Dates: start: 20230724, end: 20230803
  31. FEBUXOSTAT [Concomitant]
     Active Substance: FEBUXOSTAT
     Indication: Prophylaxis
     Dosage: 1 DOSAGE FORM, QD
     Route: 065
     Dates: start: 20230717, end: 20230803
  32. SK ALBUMIN [Concomitant]
     Indication: Prophylaxis
     Dosage: 200 ML (20 %)
     Route: 065
     Dates: start: 20230717, end: 20230717
  33. SK ALBUMIN [Concomitant]
     Dosage: 100 ML (20 %)
     Route: 065
     Dates: start: 20230718, end: 20230718
  34. SK ALBUMIN [Concomitant]
     Dosage: 200 ML
     Route: 065
     Dates: start: 20230720, end: 20230720
  35. ALMAGEL [Concomitant]
     Indication: Prophylaxis
     Dosage: 45 ML (SUSP)
     Route: 065
     Dates: start: 20230725, end: 20230728
  36. HYDROCORTISONE SODIUM SUCCINATE [Concomitant]
     Active Substance: HYDROCORTISONE SODIUM SUCCINATE
     Indication: Prophylaxis
     Dosage: 100 MG, QD
     Route: 065
     Dates: start: 20230725, end: 20230725
  37. PROPACETAMOL HYDROCHLORIDE [Concomitant]
     Active Substance: PROPACETAMOL HYDROCHLORIDE
     Indication: Prophylaxis
     Dosage: 1 G, QD
     Route: 065
     Dates: start: 20230719, end: 20230719
  38. DICAMAX [Concomitant]
     Indication: Prophylaxis
     Dosage: 1 DOSAGE FORM (1000)
     Route: 065
     Dates: start: 20230718, end: 20230803
  39. FOTAGEL [Concomitant]
     Indication: Prophylaxis
     Dosage: 60 ML (SUSP)
     Route: 065
     Dates: start: 20230721, end: 20230723
  40. FURTMAN [Concomitant]
     Indication: Prophylaxis
     Dosage: 1 ML
     Route: 065
     Dates: start: 20230718, end: 20230803
  41. FURTMAN [Concomitant]
     Dosage: 0.5 DOSAGE FORM, QD (0.5 VL)
     Route: 065
  42. MOSAPRIDE CITRATE [Concomitant]
     Active Substance: MOSAPRIDE CITRATE
     Indication: Prophylaxis
     Dosage: 1 DOSAGE FORM
     Route: 065
     Dates: start: 20230717, end: 20230717
  43. MOSAPRIDE CITRATE [Concomitant]
     Active Substance: MOSAPRIDE CITRATE
     Dosage: 3 DOSAGE FORM, QD
     Route: 065
     Dates: start: 20230718, end: 20230803
  44. K-CONTIN CONTINUS [Concomitant]
     Indication: Prophylaxis
     Dosage: 6 DOSAGE FORM
     Route: 065
     Dates: start: 20230727, end: 20230727
  45. K-CONTIN CONTINUS [Concomitant]
     Dosage: 2 DOSAGE FORM, TID
     Route: 065
  46. LASIX [Concomitant]
     Active Substance: FUROSEMIDE
     Indication: Prophylaxis
     Dosage: 20 MG
     Route: 065
     Dates: start: 20230722, end: 20230722
  47. LASIX [Concomitant]
     Active Substance: FUROSEMIDE
     Dosage: 1 DOSAGE FORM, QD (AMPOULE)
     Route: 065
  48. REBAMIPIDE [Concomitant]
     Active Substance: REBAMIPIDE
     Indication: Prophylaxis
     Dosage: 2 DOSAGE FORM (SR)
     Route: 065
     Dates: start: 20230726, end: 20230730
  49. NEXIUM [Concomitant]
     Active Substance: ESOMEPRAZOLE MAGNESIUM
     Indication: Prophylaxis
     Dosage: 160 MG
     Route: 042
     Dates: start: 20230724, end: 20230726
  50. NEXIUM [Concomitant]
     Active Substance: ESOMEPRAZOLE MAGNESIUM
     Dosage: 40 MG
     Route: 065
     Dates: start: 20230727, end: 20230803
  51. NEXIUM [Concomitant]
     Active Substance: ESOMEPRAZOLE MAGNESIUM
     Dosage: 1 DOSAGE FORM, QD (TABLET, STRENGTH 40 MG)
     Route: 065
     Dates: start: 20230803, end: 20230803
  52. PHOSTEN [Concomitant]
     Indication: Prophylaxis
     Dosage: 20 ML (AMP PP)
     Route: 065
     Dates: start: 20230717, end: 20230721
  53. PHOSTEN [Concomitant]
     Dosage: 20 ML (AMP PP)
     Route: 065
     Dates: start: 20230723, end: 20230723
  54. PHOSTEN [Concomitant]
     Dosage: 20 ML (AMP PP)
     Route: 065
     Dates: start: 20230727, end: 20230729
  55. PHOSTEN [Concomitant]
     Dosage: 20 ML (AMP PP)
     Route: 065
     Dates: start: 20230731, end: 20230731
  56. PHOSTEN [Concomitant]
     Dosage: 20 ML (AMP PP)
     Route: 065
     Dates: start: 20230803, end: 20230803
  57. VITAMINS [Concomitant]
     Active Substance: VITAMINS
     Indication: Prophylaxis
     Dosage: 1 DOSAGE FORM, QD (1VL)
     Route: 065
     Dates: start: 20230718, end: 20230803
  58. TRESTAN [Concomitant]
     Indication: Prophylaxis
     Dosage: 2 DOSAGE FORM
     Route: 065
     Dates: start: 20230718, end: 20230723
  59. TRESTAN [Concomitant]
     Dosage: 2 DOSAGE FORM
     Route: 065
     Dates: start: 20230725, end: 20230726
  60. TRESTAN [Concomitant]
     Dosage: 2 DOSAGE FORM
     Route: 065
     Dates: start: 20230728, end: 20230729
  61. TRESTAN [Concomitant]
     Dosage: 1 DOSAGE FORM, BID
     Route: 065
  62. CEFTRIAXONE SODIUM [Concomitant]
     Active Substance: CEFTRIAXONE SODIUM
     Indication: Prophylaxis
     Dosage: 2 G (TYPE? (MAPSET KIT))
     Route: 065
     Dates: start: 20230718, end: 20230719

REACTIONS (3)
  - Clostridium difficile infection [Not Recovered/Not Resolved]
  - Haematochezia [Not Recovered/Not Resolved]
  - Abdominal pain [Not Recovered/Not Resolved]

NARRATIVE: CASE EVENT DATE: 20230717
